FAERS Safety Report 6576947-7 (Version None)
Quarter: 2010Q1

REPORT INFORMATION
  Report Type: 
  Country: None (occurrence: None)
  Receive Date: 20100210
  Receipt Date: 20100204
  Transmission Date: 20100710
  Serious: Yes (Death)
  Sender: FDA-Public Use
  Company Number: US-GILEAD-2010-0026892

PATIENT
  Sex: Male

DRUGS (10)
  1. LETAIRIS [Suspect]
     Indication: PULMONARY ARTERIAL HYPERTENSION
     Route: 048
     Dates: start: 20091125
  2. COREG [Concomitant]
  3. DIGOXIN [Concomitant]
  4. CATAPRES-TTS-1 [Concomitant]
  5. LISINOPRIL [Concomitant]
  6. LASIX [Concomitant]
  7. SIMVASTATIN [Concomitant]
  8. PRANDIN [Concomitant]
  9. LEVOTHYROXINE SODIUM [Concomitant]
  10. KLOR-CON [Concomitant]

REACTIONS (1)
  - DEATH [None]
